FAERS Safety Report 25526200 (Version 2)
Quarter: 2025Q3

REPORT INFORMATION
  Report Type: Report from Study
  Country: KR (occurrence: KR)
  Receive Date: 20250707
  Receipt Date: 20250717
  Transmission Date: 20251021
  Serious: Yes (Other)
  Sender: AMGEN
  Company Number: KR-BEH-2025204869

PATIENT
  Age: 70 Year
  Sex: Female
  Weight: 64 kg

DRUGS (38)
  1. AVACOPAN [Suspect]
     Active Substance: AVACOPAN
     Indication: Microscopic polyangiitis
     Dosage: 30 MG, BID
     Route: 048
     Dates: start: 20240703
  2. RITUXIMAB [Concomitant]
     Active Substance: RITUXIMAB
     Dosage: 1000 MG, QD
     Route: 040
     Dates: start: 20240705, end: 20240705
  3. RITUXIMAB [Concomitant]
     Active Substance: RITUXIMAB
     Dosage: 1000 MG, QD
     Route: 040
     Dates: start: 20241203, end: 20241203
  4. PREDNISOLONE [Concomitant]
     Active Substance: PREDNISOLONE
     Indication: Granulomatosis with polyangiitis
     Dosage: 50 MG, QD
     Route: 048
     Dates: start: 20240704, end: 20240712
  5. PREDNISOLONE [Concomitant]
     Active Substance: PREDNISOLONE
     Indication: Microscopic polyangiitis
     Dosage: 40 MG, QD
     Route: 048
     Dates: start: 20240713, end: 20240717
  6. PREDNISOLONE [Concomitant]
     Active Substance: PREDNISOLONE
     Dosage: 35 MG, QD
     Route: 048
     Dates: start: 20240718, end: 20240724
  7. PREDNISOLONE [Concomitant]
     Active Substance: PREDNISOLONE
     Dosage: 30 MG, QD
     Route: 048
     Dates: start: 20240725, end: 20240731
  8. PREDNISOLONE [Concomitant]
     Active Substance: PREDNISOLONE
     Dosage: 25 MG, QD
     Route: 048
     Dates: start: 20240801, end: 20240807
  9. PREDNISOLONE [Concomitant]
     Active Substance: PREDNISOLONE
     Dosage: 20 MG, QD
     Route: 048
     Dates: start: 20240808, end: 20240818
  10. PREDNISOLONE [Concomitant]
     Active Substance: PREDNISOLONE
     Dosage: 15 MG, QD
     Route: 048
     Dates: start: 20240819, end: 20240825
  11. PREDNISOLONE [Concomitant]
     Active Substance: PREDNISOLONE
     Dosage: 10 MG, QD
     Route: 048
     Dates: start: 20240826, end: 20240903
  12. PREDNISOLONE [Concomitant]
     Active Substance: PREDNISOLONE
     Dosage: 5 MG, QD
     Route: 048
     Dates: start: 20240904, end: 20240913
  13. HYDROCORTISONE SODIUM SUCCINATE [Concomitant]
     Active Substance: HYDROCORTISONE SODIUM SUCCINATE
     Indication: Granulomatosis with polyangiitis
     Dosage: 1000 MG, QD
     Route: 040
     Dates: start: 20241203, end: 20241203
  14. HYDROCORTISONE SODIUM SUCCINATE [Concomitant]
     Active Substance: HYDROCORTISONE SODIUM SUCCINATE
     Indication: Microscopic polyangiitis
  15. CARVEDILOL [Concomitant]
     Active Substance: CARVEDILOL
     Indication: Hypertension
     Dosage: 1 DF, QD (STRENGTH: 12.5 MG)
     Route: 048
     Dates: start: 20240819, end: 20240903
  16. CARVEDILOL [Concomitant]
     Active Substance: CARVEDILOL
     Dosage: 1 DF, QD (STRENGTH: 25 MG)
     Route: 048
     Dates: start: 20240904, end: 20240918
  17. CARVEDILOL [Concomitant]
     Active Substance: CARVEDILOL
     Dosage: 1 DF, QD (STRENGTH: 25 MG)
     Route: 048
     Dates: start: 20240919
  18. Kanarb [Concomitant]
     Indication: Hypertension
     Dosage: 1 DF, QD (STRENGTH: 120 MG)
     Route: 048
     Dates: start: 20240830, end: 20250126
  19. Kanarb [Concomitant]
     Dosage: 1 DF, QD (STRENGTH: 60 MG)
     Route: 048
     Dates: start: 20250127
  20. TEGOPRAZAN [Concomitant]
     Active Substance: TEGOPRAZAN
     Indication: Prophylaxis
     Dosage: 1 DF, QD (STRENGTH: 25 MG)
     Route: 048
     Dates: start: 20241219
  21. ENTECAVIR [Concomitant]
     Active Substance: ENTECAVIR
     Indication: Hepatitis B virus test positive
     Dosage: 1 DF, QD (STRENGTH: 0.5 MG)
     Route: 048
     Dates: start: 20240704
  22. URSODIOL [Concomitant]
     Active Substance: URSODIOL
     Indication: Hepatitis B virus test positive
     Dosage: 1 DF, TID (STRENGTH: 100 MG)
     Route: 048
     Dates: start: 20240824, end: 20241227
  23. URSODIOL [Concomitant]
     Active Substance: URSODIOL
     Dosage: 1 DF, TID (STRENGTH: 100 MG)
     Route: 048
     Dates: start: 20241228, end: 20250406
  24. SULFAMETHOXAZOLE\TRIMETHOPRIM [Concomitant]
     Active Substance: SULFAMETHOXAZOLE\TRIMETHOPRIM
     Indication: Prophylaxis
     Route: 048
     Dates: start: 20240704, end: 20250121
  25. Moxiclan [Concomitant]
     Indication: Otitis media
     Dosage: 1 DF, TID (STRENGTH: 375 MG)
     Route: 048
     Dates: start: 20250421, end: 20250427
  26. HERBALS [Concomitant]
     Active Substance: HERBALS
     Indication: Prophylaxis
     Dosage: 30 MG, TID
     Route: 048
     Dates: start: 20250421, end: 20250427
  27. Cetraxal plus [Concomitant]
     Indication: Otitis media
     Dosage: 1 ML, QD
     Route: 065
     Dates: start: 20250421, end: 20250430
  28. NEURONTIN [Concomitant]
     Active Substance: GABAPENTIN
     Indication: Intervertebral disc protrusion
     Dosage: 1 DF, BID (STRENGTH: 100 MG)
     Route: 048
     Dates: start: 20250305
  29. Dong a opalmon [Concomitant]
     Indication: Intervertebral disc protrusion
     Dosage: 5 MG, BID
     Route: 048
     Dates: start: 20250305
  30. Paramacet SEMI [Concomitant]
     Indication: Intervertebral disc protrusion
     Dosage: 1 DF, BID
     Route: 048
     Dates: start: 20250305
  31. Almagel [Concomitant]
     Indication: Prophylaxis
     Dosage: 15 ML, TID SUSPENSION
     Route: 048
     Dates: start: 20240729, end: 20240908
  32. LYRICA [Concomitant]
     Active Substance: PREGABALIN
     Indication: Intervertebral disc protrusion
     Dosage: 1 DF, QD (STRENGTH: 50 MG)
     Route: 048
     Dates: start: 20250115, end: 20250327
  33. METHYLPREDNISOLONE [Concomitant]
     Active Substance: METHYLPREDNISOLONE
     Indication: Granulomatosis with polyangiitis
     Dosage: 50 MG, QD
     Route: 040
     Dates: start: 20240703, end: 20240703
  34. METHYLPREDNISOLONE [Concomitant]
     Active Substance: METHYLPREDNISOLONE
     Indication: Microscopic polyangiitis
  35. AMLODIPINE OROTATE [Concomitant]
     Active Substance: AMLODIPINE OROTATE
     Indication: Hypertension
     Dosage: 5 MG, QD
     Route: 048
     Dates: start: 20240703
  36. GASTER [Concomitant]
     Active Substance: FAMOTIDINE
     Indication: Prophylaxis
     Dosage: 1 DF (STRENGTH: 20 MG)
     Route: 048
     Dates: start: 20240703, end: 20240918
  37. LASIX [Concomitant]
     Active Substance: FUROSEMIDE
     Indication: Granulomatosis with polyangiitis
     Dosage: 40 MG, QD
     Route: 048
     Dates: start: 20240919, end: 20241113
  38. LASIX [Concomitant]
     Active Substance: FUROSEMIDE
     Indication: Microscopic polyangiitis

REACTIONS (2)
  - Hypokalaemia [Recovered/Resolved]
  - Liver function test increased [Recovering/Resolving]

NARRATIVE: CASE EVENT DATE: 20240729
